FAERS Safety Report 14306517 (Version 2)
Quarter: 2018Q4

REPORT INFORMATION
  Report Type: Spontaneous
  Country: FR (occurrence: FR)
  Receive Date: 20171220
  Receipt Date: 20181023
  Transmission Date: 20190204
  Serious: Yes (Other)
  Sender: FDA-Public Use
  Company Number: FR-MERCK KGAA-2037444

PATIENT
  Age: 52 Year
  Sex: Female

DRUGS (2)
  1. EUTHYROX [Suspect]
     Active Substance: LEVOTHYROXINE SODIUM
     Indication: PRODUCT USED FOR UNKNOWN INDICATION
     Dates: start: 20170919
  2. PAROXETINE MERCK [Concomitant]
     Active Substance: PAROXETINE HYDROCHLORIDE

REACTIONS (22)
  - Libido decreased [None]
  - Frustration tolerance decreased [None]
  - Psychiatric symptom [None]
  - Palpitations [None]
  - Fatigue [None]
  - Mood altered [None]
  - Decreased activity [None]
  - Drug intolerance [None]
  - Disturbance in attention [None]
  - Asthenia [None]
  - Aggression [None]
  - Abdominal distension [None]
  - Gait disturbance [None]
  - Discomfort [None]
  - Apathy [None]
  - Headache [None]
  - Vertigo [None]
  - Social avoidant behaviour [None]
  - Diarrhoea [None]
  - Musculoskeletal discomfort [None]
  - Dyspnoea [None]
  - Hypotension [None]

NARRATIVE: CASE EVENT DATE: 2017
